FAERS Safety Report 18596113 (Version 1)
Quarter: 2020Q4

REPORT INFORMATION
  Report Type: Spontaneous
  Country: FR (occurrence: FR)
  Receive Date: 20201209
  Receipt Date: 20201209
  Transmission Date: 20210114
  Serious: Yes (Other)
  Sender: FDA-Public Use
  Company Number: FR-MYLANLABS-2020M1099636

PATIENT
  Age: 67 Year
  Sex: Female
  Weight: 115 kg

DRUGS (7)
  1. SUFENTANIL                         /00723502/ [Concomitant]
     Active Substance: SUFENTANIL CITRATE
     Indication: ANAESTHESIA
     Dosage: 20 MICROGRAM, TOTAL
     Route: 042
     Dates: start: 20201015, end: 20201015
  2. NORADRENALINE MYLAN [Suspect]
     Active Substance: NOREPINEPHRINE\NOREPINEPHRINE BITARTRATE
     Indication: HYPOTENSION
     Dosage: 1 DOSAGE FORM, TOTAL
     Route: 042
     Dates: start: 20201015, end: 20201015
  3. DEXAMETHASONE                      /00016002/ [Concomitant]
     Active Substance: DEXAMETHASONE SODIUM PHOSPHATE
     Indication: ANAESTHESIA
     Dosage: 8 MILLIGRAM, TOTAL
     Route: 042
     Dates: start: 20201015, end: 20201015
  4. PROPOFOL. [Concomitant]
     Active Substance: PROPOFOL
     Indication: ANAESTHESIA
     Dosage: 200 MILLIGRAM, TOTAL
     Route: 042
     Dates: start: 20201015, end: 20201015
  5. KETAMINE RENAUDIN [Concomitant]
     Active Substance: KETAMINE
     Indication: ANAESTHESIA
     Dosage: 20 MILLIGRAM, TOTAL
     Route: 042
     Dates: start: 20201015, end: 20201015
  6. ADRENALINE                         /00003901/ [Suspect]
     Active Substance: EPINEPHRINE
     Indication: HYPOTENSION
     Dosage: 1 DOSAGE FORM, TOTAL
     Route: 042
     Dates: start: 20201015, end: 20201015
  7. ATRACURIUM HOSPIRA [Concomitant]
     Active Substance: ATRACURIUM BESYLATE
     Indication: ANAESTHESIA
     Dosage: 50 MILLIGRAM, TOTAL
     Route: 042
     Dates: start: 20201015, end: 20201015

REACTIONS (2)
  - Hypotension [Recovered/Resolved]
  - Stress cardiomyopathy [Recovered/Resolved]

NARRATIVE: CASE EVENT DATE: 20201015
